FAERS Safety Report 5269496-X (Version None)
Quarter: 2007Q1

REPORT INFORMATION
  Report Type: 
  Country: None (occurrence: None)
  Receive Date: 20070314
  Receipt Date: 20070228
  Transmission Date: 20070707
  Serious: Yes (Death, Hospitalization, Other)
  Sender: FDA-Public Use
  Company Number: 200505IM000189

PATIENT
  Age: 77 Year
  Sex: Male
  Weight: 76 kg

DRUGS (5)
  1. INTERFERON GAMMA-1B [Suspect]
     Indication: IDIOPATHIC PULMONARY FIBROSIS
     Dosage: 200 UG, TIW, SUBCUTANEOUS
     Route: 058
     Dates: start: 20041217, end: 20050513
  2. NAPROXEN [Concomitant]
  3. OMEPRAZOLE [Concomitant]
  4. QUININE/THIAMINE [Concomitant]
  5. FUROSEMIDE [Concomitant]

REACTIONS (29)
  - ABDOMINAL ABSCESS [None]
  - ABSCESS [None]
  - ACUTE RESPIRATORY DISTRESS SYNDROME [None]
  - ACUTE RESPIRATORY FAILURE [None]
  - ARRHYTHMIA [None]
  - ATRIAL FIBRILLATION [None]
  - CANDIDIASIS [None]
  - CATHETER RELATED INFECTION [None]
  - DIABETES MELLITUS [None]
  - DIVERTICULUM INTESTINAL [None]
  - DYSPNOEA EXERTIONAL [None]
  - HYPOALBUMINAEMIA [None]
  - KLEBSIELLA INFECTION [None]
  - LUNG DISORDER [None]
  - METHICILLIN-RESISTANT STAPHYLOCOCCAL AUREUS TEST POSITIVE [None]
  - NO THERAPEUTIC RESPONSE [None]
  - NOSOCOMIAL INFECTION [None]
  - PELVIC FLUID COLLECTION [None]
  - PERITONEAL ABSCESS [None]
  - PNEUMONIA [None]
  - PNEUMONIA STAPHYLOCOCCAL [None]
  - PNEUMOPERITONEUM [None]
  - POSTOPERATIVE ABSCESS [None]
  - PURULENT DISCHARGE [None]
  - RESPIRATORY DISORDER [None]
  - RESPIRATORY FAILURE [None]
  - SEPSIS [None]
  - SIGMOIDITIS [None]
  - STREPTOCOCCAL INFECTION [None]
